FAERS Safety Report 17203282 (Version 3)
Quarter: 2020Q1

REPORT INFORMATION
  Report Type: Report from Study
  Country: US (occurrence: US)
  Receive Date: 20191226
  Receipt Date: 20200117
  Transmission Date: 20200409
  Serious: Yes (Other)
  Sender: FDA-Public Use
  Company Number: US-SHIRE-US201943859

PATIENT
  Age: 58 Year
  Sex: Female
  Weight: 55.56 kg

DRUGS (4)
  1. FIRAZYR [Suspect]
     Active Substance: ICATIBANT ACETATE
     Dosage: 3 MILLILITER, AS REQ^D
     Route: 058
     Dates: start: 2006
  2. FIRAZYR [Suspect]
     Active Substance: ICATIBANT ACETATE
     Indication: HEREDITARY ANGIOEDEMA
     Dosage: 3 MILLILITER, AS REQ^D
     Route: 058
     Dates: start: 20160204
  3. 643 (LANADELUMAB) [Suspect]
     Active Substance: LANADELUMAB
     Indication: HEREDITARY ANGIOEDEMA WITH C1 ESTERASE INHIBITOR DEFICIENCY
     Dosage: 300 MILLIGRAM, 1X/2WKS
     Route: 058
     Dates: start: 20200110
  4. 643 (LANADELUMAB) [Suspect]
     Active Substance: LANADELUMAB
     Indication: HEREDITARY ANGIOEDEMA
     Dosage: 300 MILLIGRAM, 1X/2WKS
     Route: 058
     Dates: start: 20191213

REACTIONS (9)
  - Injection site pain [Recovered/Resolved]
  - Drug ineffective [Unknown]
  - Product use complaint [Unknown]
  - Upper-airway cough syndrome [Recovered/Resolved]
  - Mass [Recovered/Resolved]
  - Rash pruritic [Recovering/Resolving]
  - Wheezing [Recovered/Resolved]
  - Rash papular [Recovered/Resolved]
  - Hereditary angioedema [Recovered/Resolved]

NARRATIVE: CASE EVENT DATE: 20191204
